FAERS Safety Report 4624842-2 (Version None)
Quarter: 2005Q2

REPORT INFORMATION
  Report Type: 
  Country: None (occurrence: None)
  Receive Date: 20050325
  Receipt Date: 20050131
  Transmission Date: 20051028
  Serious: No
  Sender: FDA-Public Use
  Company Number: USA050187495

PATIENT
  Age: 70 Year
  Sex: Female
  Weight: 58 kg

DRUGS (6)
  1. FORTEO [Suspect]
     Indication: OSTEOPOROSIS
     Dosage: 20 UG/1 DAY
     Dates: start: 20040601
  2. IRON [Concomitant]
  3. CENTRUM [Concomitant]
  4. CALCIUM GLUCONATE [Concomitant]
  5. LISINOPRIL [Concomitant]
  6. PREMARIN [Concomitant]

REACTIONS (5)
  - ANAEMIA [None]
  - FATIGUE [None]
  - HAEMATOCHEZIA [None]
  - MEDICATION ERROR [None]
  - OVERDOSE [None]
